FAERS Safety Report 21128499 (Version 2)
Quarter: 2022Q3

REPORT INFORMATION
  Report Type: Other
  Country: MX (occurrence: None)
  Receive Date: 20220725
  Receipt Date: 20220905
  Transmission Date: 20221027
  Serious: Yes (Other)
  Sender: FDA-Public Use
  Company Number: MX-ROCHE-3143659

PATIENT
  Sex: Female
  Weight: 56 kg

DRUGS (14)
  1. HERCEPTIN [Suspect]
     Active Substance: TRASTUZUMAB
     Indication: HER2 positive breast cancer
     Dosage: TRASTUZUMAB 440 MG
     Route: 041
     Dates: start: 20120109, end: 2013
  2. HERCEPTIN [Suspect]
     Active Substance: TRASTUZUMAB
     Route: 041
     Dates: start: 201901, end: 2022
  3. HERCEPTIN [Suspect]
     Active Substance: TRASTUZUMAB
     Dosage: 4 CYCLES
     Route: 041
  4. HERCEPTIN [Suspect]
     Active Substance: TRASTUZUMAB
     Route: 041
     Dates: start: 201801
  5. HERCEPTIN [Suspect]
     Active Substance: TRASTUZUMAB
     Route: 041
     Dates: start: 20220214
  6. DOCETAXEL [Concomitant]
     Active Substance: DOCETAXEL
     Indication: Breast cancer
     Dosage: 12 CYCLES
     Dates: end: 201901
  7. CAPECITABINE [Concomitant]
     Active Substance: CAPECITABINE
     Indication: Breast cancer
     Route: 048
     Dates: start: 201901
  8. EXEMESTANE [Concomitant]
     Active Substance: EXEMESTANE
     Indication: HER2 positive breast cancer
     Dosage: FOR 8 MONTHS
  9. EXEMESTANE [Concomitant]
     Active Substance: EXEMESTANE
     Dates: start: 201901, end: 2022
  10. EXEMESTANE [Concomitant]
     Active Substance: EXEMESTANE
     Dosage: FOR 8 MONTHS
  11. GOSERELIN [Concomitant]
     Active Substance: GOSERELIN
     Indication: HER2 positive breast cancer
     Dates: start: 201901, end: 2022
  12. GOSERELIN [Concomitant]
     Active Substance: GOSERELIN
     Dosage: FOR 8 MONTHS
  13. UNSPECIFIED INGREDIENT [Concomitant]
     Active Substance: UNSPECIFIED INGREDIENT
     Indication: Product used for unknown indication
     Dosage: 12 CYCLES
  14. TAMOXIFEN [Concomitant]
     Active Substance: TAMOXIFEN
     Indication: Product used for unknown indication
     Dates: end: 201801

REACTIONS (11)
  - Cardiac dysfunction [Not Recovered/Not Resolved]
  - Breast cancer recurrent [Not Recovered/Not Resolved]
  - Adenocarcinoma metastatic [Unknown]
  - Breast cancer recurrent [Unknown]
  - Benign hepatic neoplasm [Unknown]
  - Lung infiltration [Unknown]
  - Breast mass [Unknown]
  - Incision site rash [Unknown]
  - Hepatic cyst [Unknown]
  - Off label use [Unknown]
  - Toxicity to various agents [Unknown]

NARRATIVE: CASE EVENT DATE: 20180101
